FAERS Safety Report 17157713 (Version 1)
Quarter: 2019Q4

REPORT INFORMATION
  Report Type: Spontaneous
  Country: US (occurrence: US)
  Receive Date: 20191213
  Receipt Date: 20191213
  Transmission Date: 20200122
  Serious: Yes (Life-Threatening, Hospitalization, Disabling)
  Sender: FDA-Public Use
  Company Number: None

PATIENT
  Age: 44 Year
  Sex: Female
  Weight: 61.2 kg

DRUGS (1)
  1. AIMOVIG [Suspect]
     Active Substance: ERENUMAB-AOOE
     Dates: start: 20190101, end: 20190921

REACTIONS (9)
  - Insulin resistance [None]
  - Vertigo [None]
  - Vision blurred [None]
  - Palpitations [None]
  - Acne cystic [None]
  - Depression [None]
  - Hypoglycaemia [None]
  - Product use complaint [None]
  - Anxiety [None]

NARRATIVE: CASE EVENT DATE: 20190728
